FAERS Safety Report 14404730 (Version 2)
Quarter: 2018Q1

REPORT INFORMATION
  Report Type: Spontaneous
  Country: CO (occurrence: CO)
  Receive Date: 20180118
  Receipt Date: 20180206
  Transmission Date: 20180509
  Serious: Yes (Other)
  Sender: FDA-Public Use
  Company Number: CO-ROCHE-2056450

PATIENT
  Sex: Female
  Weight: 66 kg

DRUGS (4)
  1. AMARYL [Concomitant]
     Active Substance: GLIMEPIRIDE
     Indication: DIABETES MELLITUS
     Dosage: UNK
     Route: 065
  2. XOLAIR [Suspect]
     Active Substance: OMALIZUMAB
     Indication: ASTHMA
     Dosage: 150 MG, BIW, STARTED 16 MONTHS AGO
     Route: 058
  3. XOLAIR [Suspect]
     Active Substance: OMALIZUMAB
     Route: 058
     Dates: start: 201701, end: 201801
  4. DESLORATADINE. [Suspect]
     Active Substance: DESLORATADINE
     Indication: PRODUCT USED FOR UNKNOWN INDICATION
     Route: 065

REACTIONS (9)
  - Malaise [Recovering/Resolving]
  - Chest discomfort [Recovering/Resolving]
  - Hypersensitivity [Recovering/Resolving]
  - Asthmatic crisis [Recovering/Resolving]
  - Urticaria [Unknown]
  - Headache [Unknown]
  - Choking [Recovering/Resolving]
  - Pain [Recovering/Resolving]
  - Pyrexia [Unknown]
